FAERS Safety Report 7740648-X (Version None)
Quarter: 2011Q3

REPORT INFORMATION
  Report Type: 
  Country: None (occurrence: None)
  Receive Date: 20110909
  Receipt Date: 20110906
  Transmission Date: 20111222
  Serious: Yes (Other)
  Sender: FDA-Public Use
  Company Number: GB-GLAXOSMITHKLINE-B0744970A

PATIENT
  Age: 34 Year
  Sex: Male

DRUGS (4)
  1. NICOTINE [Suspect]
     Route: 061
     Dates: start: 20110123, end: 20110322
  2. LAMOTRIGINE [Concomitant]
  3. VALPROIC ACID [Concomitant]
  4. ZONISAMIDE [Concomitant]

REACTIONS (2)
  - EPILEPSY [None]
  - CONVULSION [None]
